FAERS Safety Report 6449297-7 (Version None)
Quarter: 2009Q4

REPORT INFORMATION
  Report Type: 
  Country: None (occurrence: None)
  Receive Date: 20091116
  Receipt Date: 20090813
  Transmission Date: 20100525
  Serious: Yes (Other)
  Sender: FDA-Public Use
  Company Number: 2009080025

PATIENT
  Sex: Female

DRUGS (2)
  1. ASTEPRO [Suspect]
     Dosage: IN
     Route: 045
     Dates: start: 20090101, end: 20090101
  2. ASTELIN [Concomitant]

REACTIONS (2)
  - DYSPNOEA [None]
  - PHARYNGEAL OEDEMA [None]
